FAERS Safety Report 4681442-6 (Version None)
Quarter: 2005Q2

REPORT INFORMATION
  Report Type: 
  Country: None (occurrence: None)
  Receive Date: 20050601
  Receipt Date: 20050513
  Transmission Date: 20051028
  Serious: Yes (Hospitalization, Other)
  Sender: FDA-Public Use
  Company Number: USA050598061

PATIENT
  Age: 59 Year
  Sex: Female

DRUGS (1)
  1. FORTEO [Suspect]
     Indication: LOWER LIMB FRACTURE
     Dates: start: 20031201

REACTIONS (2)
  - HIP SURGERY [None]
  - PHARMACEUTICAL PRODUCT COMPLAINT [None]
